FAERS Safety Report 10024410 (Version 1)
Quarter: 2014Q1

REPORT INFORMATION
  Report Type: Spontaneous
  Country: US (occurrence: None)
  Receive Date: 20140304
  Receipt Date: 20140304
  Transmission Date: 20141002
  Serious: Yes (Hospitalization, Other)
  Sender: FDA-Public Use
  Company Number: RB-48715-2013

PATIENT
  Sex: Male

DRUGS (4)
  1. SUBOXONE 8 MG [Suspect]
     Indication: DRUG DEPENDENCE
     Route: 064
     Dates: start: 200910, end: 201002
  2. BUPRENORPHINE 8 MG (NONE) [Suspect]
     Indication: DRUG DEPENDENCE
     Route: 064
     Dates: start: 201002, end: 20100930
  3. UNSPECIFIED INGREDIENT [Suspect]
     Indication: PRODUCT USED FOR UNKNOWN INDICATION
     Route: 064
     Dates: start: 201002, end: 20100930
  4. NICOTINE [Suspect]
     Indication: PRODUCT USED FOR UNKNOWN INDICATION
     Dosage: (ESTIMATED 8 PER DAY TRANSPLACENTAL)?
     Route: 064
     Dates: start: 20100115, end: 20100930

REACTIONS (2)
  - Foetal exposure during pregnancy [None]
  - Drug withdrawal syndrome neonatal [None]
